FAERS Safety Report 18681069 (Version 1)
Quarter: 2020Q4

REPORT INFORMATION
  Report Type: Spontaneous
  Country: JP (occurrence: JP)
  Receive Date: 20201230
  Receipt Date: 20201230
  Transmission Date: 20210114
  Serious: Yes (Hospitalization, Other)
  Sender: FDA-Public Use
  Company Number: JP-ACCORD-212571

PATIENT
  Age: 56 Year
  Sex: Male

DRUGS (2)
  1. TACROLIMUS. [Suspect]
     Active Substance: TACROLIMUS
     Indication: IMMUNOSUPPRESSANT DRUG THERAPY
  2. VFEND [Suspect]
     Active Substance: VORICONAZOLE
     Indication: PROPHYLAXIS

REACTIONS (2)
  - Squamous cell carcinoma of skin [Recovered/Resolved]
  - Actinic keratosis [Recovered/Resolved]
